FAERS Safety Report 10903418 (Version 1)
Quarter: 2015Q1

REPORT INFORMATION
  Report Type: Spontaneous
  Country: JP (occurrence: None)
  Receive Date: 20150304
  Receipt Date: 20150304
  Transmission Date: 20150721
  Serious: Yes (Hospitalization)
  Sender: FDA-Public Use
  Company Number: AXC-2015-000086

PATIENT
  Age: 11 Month
  Sex: Male

DRUGS (2)
  1. URSODEOXYCHOLIC ACID (URSODEOXYCHOLIC ACID) [Suspect]
     Active Substance: URSODIOL
     Indication: CHOLELITHIASIS
     Dosage: RESTARTED ON DAY 6 OF ILLNESS
     Route: 048
  2. SCOPOLAMINE BUTYLBROMIDE [Suspect]
     Active Substance: SCOPOLAMINE
     Indication: CHOLELITHIASIS
     Route: 048

REACTIONS (3)
  - Aggression [None]
  - Bile duct obstruction [None]
  - Pancreatitis acute [None]
